FAERS Safety Report 6531057-X (Version None)
Quarter: 2010Q1

REPORT INFORMATION
  Report Type: 
  Country: None (occurrence: None)
  Receive Date: 20100108
  Receipt Date: 20091109
  Transmission Date: 20100710
  Serious: No
  Sender: FDA-Public Use
  Company Number: A0814009A

PATIENT
  Age: 58 Year
  Sex: Female

DRUGS (5)
  1. LOVAZA [Suspect]
     Dosage: 1CAP PER DAY
     Route: 048
     Dates: start: 20091028
  2. DIOVAN [Concomitant]
  3. TOPROL-XL [Concomitant]
  4. PAROXETINE HCL [Concomitant]
  5. SYNTHROID [Concomitant]

REACTIONS (2)
  - OEDEMA PERIPHERAL [None]
  - PAIN IN EXTREMITY [None]
